FAERS Safety Report 9852733 (Version 1)
Quarter: 2014Q1

REPORT INFORMATION
  Report Type: Spontaneous
  Country: FR (occurrence: FR)
  Receive Date: 20140129
  Receipt Date: 20140129
  Transmission Date: 20141002
  Serious: Yes (Hospitalization)
  Sender: FDA-Public Use
  Company Number: FR-ASTRAZENECA-2014SE04854

PATIENT
  Sex: 0

DRUGS (1)
  1. CARBOCAINE [Suspect]
     Dosage: 10 MG/ML
     Route: 042

REACTIONS (2)
  - Malaise [Unknown]
  - Drug administration error [Unknown]
